FAERS Safety Report 9319683 (Version 1)
Quarter: 2013Q2

REPORT INFORMATION
  Report Type: Spontaneous
  Country: US (occurrence: None)
  Receive Date: 20130529
  Receipt Date: 20130529
  Transmission Date: 20140414
  Serious: Yes (Disabling, Other)
  Sender: FDA-Public Use
  Company Number: None

PATIENT
  Age: 52 Year
  Sex: Male
  Weight: 83.92 kg

DRUGS (1)
  1. PROSCAR [Suspect]
     Indication: ANDROGENETIC ALOPECIA
     Dates: start: 20030101, end: 20031231

REACTIONS (10)
  - Erectile dysfunction [None]
  - Sexual dysfunction [None]
  - Cognitive disorder [None]
  - Motor dysfunction [None]
  - Drug ineffective [None]
  - Mood altered [None]
  - Blood testosterone decreased [None]
  - Decreased interest [None]
  - Semen volume decreased [None]
  - Ejaculation failure [None]
